FAERS Safety Report 8502149-0 (Version None)
Quarter: 2012Q3

REPORT INFORMATION
  Report Type: 
  Country: None (occurrence: None)
  Receive Date: 20120711
  Receipt Date: 20120706
  Transmission Date: 20120928
  Serious: Yes (Hospitalization)
  Sender: FDA-Public Use
  Company Number: GB-BAYER-2012-068041

PATIENT
  Age: 31 Year
  Sex: Female

DRUGS (3)
  1. BETASERON [Suspect]
     Indication: MULTIPLE SCLEROSIS
     Dosage: UNK
     Dates: start: 20080409, end: 20090724
  2. BETASERON [Suspect]
     Dosage: UNK
     Route: 058
     Dates: start: 20110819, end: 20120511
  3. AMITRIPTYLINE HCL [Concomitant]
     Dosage: 10 MG, UNK

REACTIONS (6)
  - DEVICE BREAKAGE [None]
  - PYREXIA [None]
  - NEUTROPENIA [None]
  - NEUTROPENIC SEPSIS [None]
  - AXILLARY MASS [None]
  - PANCYTOPENIA [None]
